FAERS Safety Report 5064909-0 (Version None)
Quarter: 2006Q3

REPORT INFORMATION
  Report Type: 
  Country: None (occurrence: None)
  Receive Date: 20060726
  Receipt Date: 20060714
  Transmission Date: 20061208
  Serious: Yes (Hospitalization)
  Sender: FDA-Public Use
  Company Number: 227423

PATIENT
  Age: 57 Year
  Sex: Female

DRUGS (1)
  1. MABTHERA (RITUXIMAB) CONC FOR SOLUTION FOR INFUSION [Suspect]
     Dosage: INTRAVENOUS
     Route: 042
     Dates: start: 20060501, end: 20060101

REACTIONS (5)
  - CARDIOTOXICITY [None]
  - CONVULSION [None]
  - DEHYDRATION [None]
  - INFUSION RELATED REACTION [None]
  - VOMITING [None]
